FAERS Safety Report 17995867 (Version 1)
Quarter: 2020Q3

REPORT INFORMATION
  Report Type: Report from Study
  Country: US (occurrence: US)
  Receive Date: 20200708
  Receipt Date: 20200708
  Transmission Date: 20201103
  Serious: Yes (Hospitalization, Other)
  Sender: FDA-Public Use
  Company Number: US-ADAMAS PHARMA, LLC-2020ADA01521

PATIENT
  Sex: Male

DRUGS (6)
  1. XADAGO [Concomitant]
     Active Substance: SAFINAMIDE MESYLATE
  2. PROSCAR [Concomitant]
     Active Substance: FINASTERIDE
  3. RYTARY [Concomitant]
     Active Substance: CARBIDOPA\LEVODOPA
  4. GOCOVRI [Suspect]
     Active Substance: AMANTADINE
     Indication: DYSKINESIA
     Dosage: 137 MG, 1X/DAY AT BEDTIME
     Route: 048
     Dates: start: 20171205, end: 202004
  5. ASPIRIN. [Concomitant]
     Active Substance: ASPIRIN
  6. LIPITOR [Concomitant]
     Active Substance: ATORVASTATIN CALCIUM

REACTIONS (2)
  - Intestinal obstruction [Recovered/Resolved]
  - Intestinal operation [Recovered/Resolved]

NARRATIVE: CASE EVENT DATE: 2020
